FAERS Safety Report 10738293 (Version 3)
Quarter: 2015Q1

REPORT INFORMATION
  Report Type: Spontaneous
  Country: US (occurrence: US)
  Receive Date: 20150126
  Receipt Date: 20150318
  Transmission Date: 20150721
  Serious: Yes (Other)
  Sender: FDA-Public Use
  Company Number: US-TEVA-535719USA

PATIENT
  Age: 50 Year
  Sex: Male

DRUGS (1)
  1. COPAXONE [Suspect]
     Active Substance: GLATIRAMER ACETATE
     Indication: MULTIPLE SCLEROSIS
     Dates: start: 2014, end: 20150123

REACTIONS (2)
  - Colorectal cancer [Unknown]
  - Colostomy [Unknown]

NARRATIVE: CASE EVENT DATE: 20141222
